FAERS Safety Report 7099734 (Version 4)
Quarter: 2012Q4

REPORT INFORMATION
  Report Type: 
  Country: CA (occurrence: CA)
  Receive Date: 20090828
  Receipt Date: 20121106
  Transmission Date: 20130627
  Serious: Yes (Hospitalization, Other)
  Sender: FDA-Public Use
  Company Number: PHHY2009CA18230

PATIENT
  Sex: Male

DRUGS (2)
  1. SANDOSTATIN LAR [Suspect]
     Indication: HEPATIC NEOPLASM
     Dosage: 30 mg, every 4 weeks
     Route: 030
     Dates: start: 20081215
  2. ENTROPHEN [Concomitant]

REACTIONS (10)
  - Depression [Unknown]
  - Haemorrhage subcutaneous [Unknown]
  - Haemorrhage [Unknown]
  - Malignant neoplasm progression [Unknown]
  - Abdominal pain upper [Unknown]
  - Back pain [Unknown]
  - Pain [Unknown]
  - Incision site complication [Unknown]
  - Blood pressure systolic increased [Unknown]
  - Injection site pain [Unknown]
